FAERS Safety Report 23596432 (Version 1)
Quarter: 2024Q1

REPORT INFORMATION
  Report Type: Spontaneous
  Country: US (occurrence: US)
  Receive Date: 20240305
  Receipt Date: 20240305
  Transmission Date: 20240410
  Serious: Yes (Other)
  Sender: FDA-Public Use
  Company Number: US-IBSA PHARMA INC.-2024IBS000074

PATIENT

DRUGS (1)
  1. TIROSINT [Suspect]
     Active Substance: LEVOTHYROXINE SODIUM
     Indication: Psoriasis
     Dosage: 125 MICROGRAM, QD
     Route: 048
     Dates: start: 2009

REACTIONS (5)
  - Ischaemic stroke [Unknown]
  - Dysphagia [Unknown]
  - Off label use [Unknown]
  - Product dose omission issue [Unknown]
  - Product administration error [Unknown]
